FAERS Safety Report 10060393 (Version 1)
Quarter: 2014Q2

REPORT INFORMATION
  Report Type: Spontaneous
  Country: US (occurrence: US)
  Receive Date: 20140404
  Receipt Date: 20140404
  Transmission Date: 20141212
  Serious: Yes (Congenital Anomaly, Other)
  Sender: FDA-Public Use
  Company Number: US-WATSON-2014-06204

PATIENT
  Sex: Male
  Weight: 2 kg

DRUGS (1)
  1. DEFEROXAMINE MESYLATE (WATSON LABORATORIES) [Suspect]
     Indication: CHELATION THERAPY
     Dosage: 40 MG/KG, DAILY, 6 DAYS/WEEK
     Route: 064

REACTIONS (2)
  - Chondrodystrophy [Not Recovered/Not Resolved]
  - Foetal exposure during pregnancy [Unknown]
